FAERS Safety Report 24026969 (Version 1)
Quarter: 2024Q2

REPORT INFORMATION
  Report Type: Spontaneous
  Country: DE (occurrence: DE)
  Receive Date: 20240628
  Receipt Date: 20240628
  Transmission Date: 20240716
  Serious: No
  Sender: FDA-Public Use
  Company Number: DE-ROCHE-3568667

PATIENT
  Sex: Female

DRUGS (1)
  1. ALECENSA [Suspect]
     Active Substance: ALECTINIB HYDROCHLORIDE
     Indication: Lung cancer metastatic
     Dosage: 9-10/2023 ALECTINIB, DISCONTINUED DUE TO ELEVATED TRANSAMINASES
     Route: 065

REACTIONS (1)
  - Transaminases increased [Unknown]
